FAERS Safety Report 7984165-0 (Version None)
Quarter: 2011Q4

REPORT INFORMATION
  Report Type: 
  Country: None (occurrence: None)
  Receive Date: 20111213
  Receipt Date: 20111128
  Transmission Date: 20120403
  Serious: Yes (Other)
  Sender: FDA-Public Use
  Company Number: FK201102847

PATIENT
  Age: 15 Year
  Sex: Male

DRUGS (4)
  1. VANCOMYCIN [Suspect]
     Indication: ABSCESS
     Dosage: 1 G/12 H, INTRAVENOUS
     Route: 042
  2. VANCOMYCIN [Suspect]
     Indication: ENDOCARDITIS STAPHYLOCOCCAL
     Dosage: 1 G/12 H, INTRAVENOUS
     Route: 042
  3. GENTAMICIN [Suspect]
     Indication: ENDOCARDITIS STAPHYLOCOCCAL
     Dosage: 60 MG/8H, INTRAVENOUS
     Route: 042
  4. GENTAMICIN [Suspect]
     Indication: ABSCESS
     Dosage: 60 MG/8H, INTRAVENOUS
     Route: 042

REACTIONS (3)
  - LEUKOPENIA [None]
  - CELLULITIS [None]
  - CONDITION AGGRAVATED [None]
